FAERS Safety Report 20669481 (Version 2)
Quarter: 2022Q2

REPORT INFORMATION
  Report Type: Report from Study
  Country: US (occurrence: US)
  Receive Date: 20220404
  Receipt Date: 20220408
  Transmission Date: 20220720
  Serious: No
  Sender: FDA-Public Use
  Company Number: US-ViiV Healthcare Limited-US2022GSK056998

PATIENT
  Age: 27 Year
  Sex: Female
  Weight: 81.8 kg

DRUGS (5)
  1. DOLUTEGRAVIR [Suspect]
     Active Substance: DOLUTEGRAVIR
     Indication: HIV infection
     Dosage: 50 MG, QD
     Route: 048
     Dates: start: 20140624
  2. DOLUTEGRAVIR SODIUM\LAMIVUDINE [Concomitant]
     Active Substance: DOLUTEGRAVIR SODIUM\LAMIVUDINE
     Indication: HIV infection
     Dosage: 500 MG, QD
     Route: 048
     Dates: start: 20170127
  3. FOLATE SUPPLEMENT [Concomitant]
     Indication: Product used for unknown indication
  4. ZOFRAN [Concomitant]
     Active Substance: ONDANSETRON HYDROCHLORIDE
     Indication: Product used for unknown indication
  5. IRON [Concomitant]
     Active Substance: IRON
     Indication: Product used for unknown indication

REACTIONS (2)
  - COVID-19 [Unknown]
  - Preterm premature rupture of membranes [Unknown]
